FAERS Safety Report 19232748 (Version 1)
Quarter: 2021Q2

REPORT INFORMATION
  Report Type: Spontaneous
  Country: US (occurrence: US)
  Receive Date: 20210507
  Receipt Date: 20210507
  Transmission Date: 20210717
  Serious: Yes (Other)
  Sender: FDA-Public Use
  Company Number: US-SUN PHARMACEUTICAL INDUSTRIES LTD-2021R1-295418

PATIENT
  Age: 26 Year
  Sex: Female

DRUGS (4)
  1. BACLOFEN. [Suspect]
     Active Substance: BACLOFEN
     Indication: CEREBRAL PALSY
     Dosage: UNK
     Route: 048
  2. OXYCODONE?ACETAMINOPHEN [Suspect]
     Active Substance: ACETAMINOPHEN\OXYCODONE HYDROCHLORIDE
     Indication: CEREBRAL PALSY
     Dosage: UNK
     Route: 065
  3. DANTROLENE. [Suspect]
     Active Substance: DANTROLENE SODIUM
     Indication: CEREBRAL PALSY
     Dosage: UNK
     Route: 065
  4. TRAMADOL. [Suspect]
     Active Substance: TRAMADOL
     Indication: CEREBRAL PALSY
     Dosage: UNK
     Route: 065

REACTIONS (1)
  - Treatment failure [Unknown]
